FAERS Safety Report 5068187-8 (Version None)
Quarter: 2006Q3

REPORT INFORMATION
  Report Type: 
  Country: None (occurrence: None)
  Receive Date: 20060802
  Receipt Date: 20040322
  Transmission Date: 20061208
  Serious: No
  Sender: FDA-Public Use
  Company Number: US-BRISTOL-MYERS SQUIBB COMPANY-12539508

PATIENT
  Age: 80 Year
  Sex: Female
  Weight: 73 kg

DRUGS (9)
  1. COUMADIN [Suspect]
     Indication: HEART VALVE REPLACEMENT
     Dosage: DOSAGE: 2MG DAILY 6 TIMES WEEKLY AND 4MG 1 TIME WEEKLY
     Route: 048
     Dates: start: 19980101
  2. COREG [Concomitant]
  3. THIAZIDE [Concomitant]
  4. PROCANBID [Concomitant]
  5. COZAAR [Concomitant]
  6. LANOXIN [Concomitant]
  7. VALIUM [Concomitant]
  8. TYLENOL W/ CODEINE NO. 3 [Concomitant]
  9. ZOCOR [Concomitant]

REACTIONS (2)
  - ABDOMINAL PAIN UPPER [None]
  - BLOOD VISCOSITY INCREASED [None]
